FAERS Safety Report 5678128-8 (Version None)
Quarter: 2008Q1

REPORT INFORMATION
  Report Type: 
  Country: None (occurrence: None)
  Receive Date: 20080319
  Receipt Date: 20080307
  Transmission Date: 20080703
  Serious: Yes (Hospitalization)
  Sender: FDA-Public Use
  Company Number: 2008-00534

PATIENT
  Sex: Female
  Weight: 83 kg

DRUGS (10)
  1. VELCADE [Suspect]
     Indication: MULTIPLE MYELOMA
     Dosage: 1.00 MG/M2, INTRAVENOUS
     Route: 042
     Dates: start: 20071210, end: 20080131
  2. CYCLOPHOSPHAMIDE [Suspect]
     Indication: MULTIPLE MYELOMA
     Dosage: 900.00 MG/M2, INTRAVENOUS
     Route: 042
     Dates: start: 20071210, end: 20080131
  3. DEXAMETHASONE TAB [Suspect]
     Indication: MULTIPLE MYELOMA
     Dosage: 40.00 MG, ORAL
     Route: 048
     Dates: start: 20071210, end: 20080131
  4. TORSEMIDE [Concomitant]
  5. POTASSIUM CHLORIDE [Concomitant]
  6. ZOLEDRONIC ACID [Concomitant]
  7. MESNA [Concomitant]
  8. METAMIZOL NATRIUM (METAMIZOLE SODIUM) [Concomitant]
  9. LEVOFLOXACIN [Concomitant]
  10. ACETAMINOPHEN [Concomitant]

REACTIONS (2)
  - PNEUMONIA [None]
  - SUICIDE ATTEMPT [None]
